FAERS Safety Report 21746215 (Version 1)
Quarter: 2022Q4

REPORT INFORMATION
  Report Type: Spontaneous
  Country: US (occurrence: None)
  Receive Date: 20221216
  Receipt Date: 20221216
  Transmission Date: 20230112
  Serious: Yes (Other)
  Sender: FDA-Public Use
  Company Number: None

PATIENT
  Sex: Female

DRUGS (4)
  1. HUMIRA [Suspect]
     Active Substance: ADALIMUMAB
     Indication: Crohn^s disease
     Dosage: OTHER QUANTITY : 40MG/0.4ML;?FREQUENCY : WEEKLY;?
     Route: 058
     Dates: start: 20190219
  2. B-COMPLEX INJ [Concomitant]
  3. LEXAPRO TAB [Concomitant]
  4. MULTIVITAMIN CAP [Concomitant]

REACTIONS (2)
  - Therapy interrupted [None]
  - Therapy non-responder [None]
